FAERS Safety Report 4970888-4 (Version None)
Quarter: 2006Q2

REPORT INFORMATION
  Report Type: 
  Country: None (occurrence: None)
  Receive Date: 20060411
  Receipt Date: 20060411
  Transmission Date: 20061013
  Serious: Yes (Other)
  Sender: FDA-Public Use
  Company Number: None

PATIENT
  Age: 28 Year
  Sex: Female
  Weight: 97.4 kg

DRUGS (1)
  1. NITROGLYCERIN [Suspect]

REACTIONS (1)
  - SYNCOPE [None]
